FAERS Safety Report 16533534 (Version 2)
Quarter: 2019Q3

REPORT INFORMATION
  Report Type: Spontaneous
  Country: US (occurrence: US)
  Receive Date: 20190704
  Receipt Date: 20190923
  Transmission Date: 20191004
  Serious: Yes (Other)
  Sender: FDA-Public Use
  Company Number: US-MYLANLABS-2019M1058514

PATIENT
  Sex: Female
  Weight: 73.48 kg

DRUGS (4)
  1. MEDROXYPROGESTERONE ACETATE INJECTABLE SUSPENSION USP [Suspect]
     Active Substance: MEDROXYPROGESTERONE ACETATE
     Indication: CONTRACEPTION
     Dosage: 1 INJECTION , Q3MONTHS
     Route: 030
     Dates: start: 20190107
  2. MEDROXYPROGESTERONE ACETATE INJECTABLE SUSPENSION USP [Suspect]
     Active Substance: MEDROXYPROGESTERONE ACETATE
     Dosage: UNK
     Dates: start: 201812
  3. SONATA                             /00061001/ [Concomitant]
     Active Substance: CARISOPRODOL
     Dosage: 1, QD
     Route: 048
  4. EFFEXOR [Concomitant]
     Active Substance: VENLAFAXINE HYDROCHLORIDE
     Dosage: 75 MILLIGRAM, QD

REACTIONS (3)
  - Drug ineffective [Unknown]
  - Pregnancy with injectable contraceptive [Unknown]
  - Maternal exposure during pregnancy [Unknown]

NARRATIVE: CASE EVENT DATE: 2019
